FAERS Safety Report 4881976-5 (Version None)
Quarter: 2006Q1

REPORT INFORMATION
  Report Type: 
  Country: None (occurrence: None)
  Receive Date: 20060117
  Receipt Date: 20051221
  Transmission Date: 20060701
  Serious: Yes (Hospitalization)
  Sender: FDA-Public Use
  Company Number: DE-GLAXOSMITHKLINE-D0048290A

PATIENT
  Age: 71 Year
  Sex: Male
  Weight: 113 kg

DRUGS (9)
  1. AVANDIA [Suspect]
     Dosage: 8MG PER DAY
     Route: 048
     Dates: start: 20051115, end: 20051216
  2. METOPROLOL SUCCINATE [Concomitant]
     Dosage: 1TAB TWICE PER DAY
     Route: 048
  3. DIGIMERCK [Concomitant]
     Dosage: .1MG TWICE PER DAY
     Route: 048
  4. LISINOPRIL [Concomitant]
     Dosage: 20MG PER DAY
     Route: 048
  5. SPIRONOLACTONE [Concomitant]
     Dosage: 100MG PER DAY
     Route: 048
  6. FUROSEMIDE [Concomitant]
     Dosage: 40MG TWICE PER DAY
     Route: 048
  7. XIPAMIDE [Concomitant]
     Dosage: 20MG PER DAY
     Route: 048
  8. GLIBENCLAMID [Concomitant]
     Dosage: 3.5MG TWICE PER DAY
     Route: 048
  9. ANTIBIOTIC (UNSPECIFIED) [Concomitant]
     Indication: BORRELIA INFECTION
     Route: 042

REACTIONS (7)
  - ASCITES [None]
  - CARDIAC FAILURE [None]
  - DYSPNOEA EXACERBATED [None]
  - FLUID RETENTION [None]
  - OEDEMA [None]
  - PRESCRIBED OVERDOSE [None]
  - WEIGHT INCREASED [None]
